FAERS Safety Report 26009912 (Version 1)
Quarter: 2025Q4

REPORT INFORMATION
  Report Type: Spontaneous
  Country: EU (occurrence: EU)
  Receive Date: 20251107
  Receipt Date: 20251107
  Transmission Date: 20260118
  Serious: Yes (Death, Hospitalization)
  Sender: ACCORD
  Company Number: None

PATIENT
  Age: 84 Year
  Sex: Female
  Weight: 70 kg

DRUGS (5)
  1. PRASUGREL [Suspect]
     Active Substance: PRASUGREL
     Indication: Arterial stent insertion
     Dosage: DAILY DOSE: 10 MG EVERY 1 DAY
     Dates: start: 202411, end: 20250824
  2. BISOPROLOL [Concomitant]
     Active Substance: BISOPROLOL
     Indication: Hypertension
     Dosage: 5MG DAILY DOSE: 2 (DF) EVERY 1 DAY
     Dates: start: 202408, end: 20250824
  3. HYDROMORPHONE [Concomitant]
     Active Substance: HYDROMORPHONE
     Indication: Analgesic therapy
     Dosage: 4 MG DAILY DOSE: 2 (DF) EVERY 1 DAY
     Dates: start: 20250226, end: 20250824
  4. BENAZEPRIL HYDROCHLORIDE AND HYDROCHLOROTHIAZIDE [Concomitant]
     Active Substance: BENAZEPRIL HYDROCHLORIDE\HYDROCHLOROTHIAZIDE
     Indication: Hypertension
     Dosage: 20/25MG DAILY DOSE: 0.5 (DF) EVERY 1 DAY
     Dates: start: 202502, end: 20250824
  5. AMITRIPTYLINE [Concomitant]
     Active Substance: AMITRIPTYLINE
     Indication: Analgesic therapy
     Dosage: 20 MG DAILY DOSE: 2 (DF) EVERY 1 DAY
     Dates: start: 202408, end: 20250824

REACTIONS (1)
  - Cerebellar haemorrhage [Fatal]

NARRATIVE: CASE EVENT DATE: 20250825
